FAERS Safety Report 19681634 (Version 3)
Quarter: 2021Q3

REPORT INFORMATION
  Report Type: Spontaneous
  Country: ES (occurrence: ES)
  Receive Date: 20210810
  Receipt Date: 20210826
  Transmission Date: 20211014
  Serious: Yes (Life-Threatening, Other)
  Sender: FDA-Public Use
  Company Number: ES-MYLANLABS-2021M1049348

PATIENT
  Age: 53 Year
  Sex: Female

DRUGS (6)
  1. GABAPENTIN. [Suspect]
     Active Substance: GABAPENTIN
     Indication: NEURALGIA
     Dosage: UNK
     Route: 065
  2. CLADRIBINE. [Suspect]
     Active Substance: CLADRIBINE
     Indication: MULTIPLE SCLEROSIS
     Dosage: SECOND CYCLE THERAPY
     Dates: start: 202001
  3. LEUSTATIN [Suspect]
     Active Substance: CLADRIBINE
     Indication: NEURALGIA
     Dosage: CYCLE
     Route: 065
     Dates: start: 201912
  4. LEUSTATIN [Suspect]
     Active Substance: CLADRIBINE
     Dosage: CYCLE, SECOND CYCLE
     Dates: start: 202001
  5. LEUSTATIN [Suspect]
     Active Substance: CLADRIBINE
     Indication: MULTIPLE SCLEROSIS
     Dosage: UNK, CYCLE (FIRST CYCLE)
     Route: 065
     Dates: start: 201912
  6. CLADRIBINE. [Suspect]
     Active Substance: CLADRIBINE
     Indication: NEURALGIA
     Dosage: FIRST CYCLE THERAPY
     Dates: start: 201912

REACTIONS (8)
  - Lymphopenia [Recovered/Resolved]
  - Neutropenia [Recovered/Resolved]
  - Leukopenia [Not Recovered/Not Resolved]
  - Haematotoxicity [Not Recovered/Not Resolved]
  - Asthenia [Unknown]
  - Off label use [Unknown]
  - Neuralgia [Unknown]
  - Product use in unapproved indication [Unknown]

NARRATIVE: CASE EVENT DATE: 201912
